FAERS Safety Report 4299462-2 (Version None)
Quarter: 2004Q1

REPORT INFORMATION
  Report Type: 
  Country: None (occurrence: None)
  Receive Date: 20040219
  Receipt Date: 20030925
  Transmission Date: 20041129
  Serious: Yes (Other)
  Sender: FDA-Public Use
  Company Number: US-GLAXOSMITHKLINE-A0427751A

PATIENT
  Age: 50 Year
  Sex: Female

DRUGS (8)
  1. LOTRONEX [Suspect]
     Indication: DRUG USE FOR UNKNOWN INDICATION
     Dosage: 1MG PER DAY
     Route: 048
     Dates: start: 20030831, end: 20030905
  2. LIBRAX [Concomitant]
     Dosage: 75MG PER DAY
  3. ACTONEL [Concomitant]
  4. PROTONIX [Concomitant]
  5. EFFEXOR [Concomitant]
     Dosage: 225MG PER DAY
  6. WELLBUTRIN [Concomitant]
  7. CALCIUM [Concomitant]
  8. VITAMIN D [Concomitant]

REACTIONS (4)
  - CONFUSIONAL STATE [None]
  - DISORIENTATION [None]
  - HEADACHE [None]
  - LOSS OF CONSCIOUSNESS [None]
